FAERS Safety Report 4442655-1 (Version None)
Quarter: 2004Q3

REPORT INFORMATION
  Report Type: 
  Country: None (occurrence: None)
  Receive Date: 20040903
  Receipt Date: 20040609
  Transmission Date: 20050211
  Serious: Yes (Other)
  Sender: FDA-Public Use
  Company Number: 2004UW11968

PATIENT
  Age: 75 Year
  Sex: Female
  Weight: 77.1115 kg

DRUGS (5)
  1. CRESTOR [Suspect]
     Indication: HYPERCHOLESTEROLAEMIA
     Dosage: 10 MG DAILY
     Route: 048
  2. ISOSORBIDE [Concomitant]
  3. ASPIRIN [Concomitant]
  4. DILTIAZEM [Concomitant]
  5. ZOLOFT [Concomitant]

REACTIONS (1)
  - VISUAL DISTURBANCE [None]
